FAERS Safety Report 11269096 (Version 1)
Quarter: 2015Q3

REPORT INFORMATION
  Report Type: Spontaneous
  Country: US (occurrence: None)
  Receive Date: 20150710
  Receipt Date: 20150710
  Transmission Date: 20151125
  Serious: Yes (Hospitalization)
  Sender: FDA-Public Use
  Company Number: 2015AP010467

PATIENT
  Age: 23 Year
  Sex: Female

DRUGS (2)
  1. PHENOBARBITAL. [Concomitant]
     Active Substance: PHENOBARBITAL
  2. FOSPHENYTOIN SODIUM INJECTION USP (FOSPHENYTOIN) INJECTIONRN [Suspect]
     Active Substance: FOSPHENYTOIN SODIUM
     Indication: STATUS EPILEPTICUS

REACTIONS (3)
  - Toxicity to various agents [None]
  - Coma [None]
  - Haemodialysis [None]
